FAERS Safety Report 6124583-9 (Version None)
Quarter: 2009Q1

REPORT INFORMATION
  Report Type: 
  Country: None (occurrence: None)
  Receive Date: 20090319
  Receipt Date: 20090313
  Transmission Date: 20090719
  Serious: Yes (Hospitalization)
  Sender: FDA-Public Use
  Company Number: A0713034A

PATIENT
  Age: 61 Year
  Sex: Female
  Weight: 90 kg

DRUGS (7)
  1. AVANDIA [Suspect]
     Dosage: 4MG PER DAY
     Route: 048
     Dates: start: 20040805, end: 20061018
  2. GLYBURIDE [Concomitant]
     Dates: start: 19990601, end: 20070701
  3. HUMULIN N [Concomitant]
     Dates: start: 19990601
  4. HYDROCHLOROTHIAZIDE [Concomitant]
     Dates: start: 20051001
  5. AMITRIPTYLINE [Concomitant]
  6. FOLIC ACID [Concomitant]
  7. DITROPAN [Concomitant]

REACTIONS (1)
  - MYOCARDIAL INFARCTION [None]
